FAERS Safety Report 17501588 (Version 1)
Quarter: 2020Q1

REPORT INFORMATION
  Report Type: Spontaneous
  Country: US (occurrence: US)
  Receive Date: 20200221
  Receipt Date: 20200221
  Transmission Date: 20200409
  Serious: Yes (Hospitalization)
  Sender: FDA-Public Use
  Company Number: None

PATIENT
  Sex: Female

DRUGS (8)
  1. AZITHROMYCIN ANHYDROUS. [Concomitant]
     Active Substance: AZITHROMYCIN ANHYDROUS
  2. NUCALA [Suspect]
     Active Substance: MEPOLIZUMAB
     Indication: ASTHMA
  3. ALBUTEROL. [Concomitant]
     Active Substance: ALBUTEROL
  4. BENZONATE [Concomitant]
     Active Substance: BENZONATATE
  5. PREDNISONE. [Concomitant]
     Active Substance: PREDNISONE
  6. UNCRUSEELLIPT [Concomitant]
  7. BUMETANIDE. [Concomitant]
     Active Substance: BUMETANIDE
  8. DULERA [Concomitant]
     Active Substance: FORMOTEROL FUMARATE DIHYDRATE\MOMETASONE FUROATE

REACTIONS (2)
  - Asthma [None]
  - Therapy cessation [None]

NARRATIVE: CASE EVENT DATE: 202001
